FAERS Safety Report 7450417-6 (Version None)
Quarter: 2011Q2

REPORT INFORMATION
  Report Type: 
  Country: None (occurrence: None)
  Receive Date: 20110502
  Receipt Date: 20110425
  Transmission Date: 20111010
  Serious: Yes (Hospitalization)
  Sender: FDA-Public Use
  Company Number: US-SANOFI-AVENTIS-2011SA025601

PATIENT
  Sex: Female

DRUGS (2)
  1. PREDNISONE [Suspect]
     Dates: start: 20100101
  2. PLAQUENIL [Suspect]
     Indication: ARTHRITIS
     Route: 048
     Dates: start: 20100101, end: 20100101

REACTIONS (4)
  - BLOOD GLUCOSE INCREASED [None]
  - HAEMORRHAGE [None]
  - MALAISE [None]
  - PLATELET COUNT DECREASED [None]
